FAERS Safety Report 18132492 (Version 1)
Quarter: 2020Q3

REPORT INFORMATION
  Report Type: Spontaneous
  Country: CN (occurrence: CN)
  Receive Date: 20200811
  Receipt Date: 20200811
  Transmission Date: 20201103
  Serious: Yes (Other)
  Sender: FDA-Public Use
  Company Number: CN-LUPIN PHARMACEUTICALS INC.-2020-04275

PATIENT
  Age: 24 Year
  Sex: Female

DRUGS (6)
  1. LYSINE HYDROCHLORIDE;ZINC GLUCONATE [Concomitant]
     Indication: ORAL LICHEN PLANUS
     Dosage: UNK, TID
     Route: 065
  2. CALCIUM PHOSPHATE DIBASIC, ERGOCALCIFEROL [Concomitant]
     Indication: ORAL LICHEN PLANUS
     Dosage: 2 DOSAGE FORM, TID
     Route: 065
  3. POTASSIUM CHLORIDE. [Concomitant]
     Active Substance: POTASSIUM CHLORIDE
     Indication: ORAL LICHEN PLANUS
     Dosage: 1 DOSAGE FORM, BID
     Route: 065
  4. TRIAMCINOLONE [Suspect]
     Active Substance: TRIAMCINOLONE
     Indication: ORAL LICHEN PLANUS
     Dosage: 5 MILLIGRAM, UNK
     Dates: start: 20170920, end: 201710
  5. GYNOSTEMMA PENTAPHYLLUM [Concomitant]
     Indication: ORAL LICHEN PLANUS
     Dosage: 60 MILLIGRAM, TID
     Route: 065
  6. THALIDOMIDE [Concomitant]
     Active Substance: THALIDOMIDE
     Indication: ORAL LICHEN PLANUS
     Dosage: 50 MILLIGRAM, QD
     Route: 048

REACTIONS (3)
  - Glossodynia [Recovered/Resolved]
  - Type IV hypersensitivity reaction [Unknown]
  - Tongue haemorrhage [Recovered/Resolved]

NARRATIVE: CASE EVENT DATE: 201709
